FAERS Safety Report 5442422-6 (Version None)
Quarter: 2007Q3

REPORT INFORMATION
  Report Type: 
  Country: None (occurrence: None)
  Receive Date: 20070904
  Receipt Date: 20070823
  Transmission Date: 20080115
  Serious: Yes (Hospitalization, Other)
  Sender: FDA-Public Use
  Company Number: US-PFIZER INC-2007070966

PATIENT
  Age: 73 Year
  Sex: Female
  Weight: 79.4 kg

DRUGS (23)
  1. LYRICA [Suspect]
     Indication: DIABETIC NEUROPATHY
     Dates: start: 20070518, end: 20070101
  2. GABAPENTIN [Suspect]
     Indication: DIABETIC NEUROPATHY
  3. LANTUS [Concomitant]
  4. ALLOPURINOL [Concomitant]
  5. REQUIP [Concomitant]
  6. NITROGLYCERIN [Concomitant]
  7. DURAGESIC-100 [Concomitant]
  8. ZOCOR [Concomitant]
  9. LASIX [Concomitant]
  10. VASOTEC [Concomitant]
  11. PREVACID [Concomitant]
  12. DIGOXIN [Concomitant]
  13. POTASSIUM CHLORIDE [Concomitant]
  14. TOPROL-XL [Concomitant]
  15. PEPTO-BISMOL [Concomitant]
  16. LORATADINE W/PSEUDOEPHEDRINE [Concomitant]
  17. CRANBERRY [Concomitant]
  18. BENZONATATE [Concomitant]
  19. TYLENOL (CAPLET) [Concomitant]
  20. ALBUTEROL [Concomitant]
  21. NASONEX [Concomitant]
     Route: 045
  22. ASPIRIN [Concomitant]
  23. INSULIN [Concomitant]

REACTIONS (5)
  - BLOOD CHOLESTEROL INCREASED [None]
  - BLOOD GLUCOSE INCREASED [None]
  - BLOOD TRIGLYCERIDES INCREASED [None]
  - CARDIAC FAILURE CONGESTIVE [None]
  - FLUID RETENTION [None]
